FAERS Safety Report 4690295-1 (Version None)
Quarter: 2005Q2

REPORT INFORMATION
  Report Type: 
  Country: None (occurrence: None)
  Receive Date: 20050615
  Receipt Date: 20050603
  Transmission Date: 20051028
  Serious: Yes (Other)
  Sender: FDA-Public Use
  Company Number: IL-GLAXOSMITHKLINE-B0383362A

PATIENT
  Age: 56 Year
  Sex: Male

DRUGS (6)
  1. ROSIGLITAZONE [Suspect]
     Indication: DIABETES MELLITUS NON-INSULIN-DEPENDENT
     Route: 065
  2. ACETYLSALICYLIC ACID SRT [Concomitant]
     Dosage: 100MG PER DAY
  3. PROPRANOLOL [Concomitant]
     Dosage: 80MG PER DAY
  4. AMLODIPINE [Concomitant]
     Dosage: 5MG PER DAY
  5. PHENOXYBENZAMINE [Concomitant]
     Dosage: 10MG PER DAY
  6. SIMVASTATIN [Concomitant]
     Dosage: 10MG PER DAY

REACTIONS (5)
  - HAEMATOCRIT DECREASED [None]
  - HAEMOGLOBIN DECREASED [None]
  - PANCYTOPENIA [None]
  - PLATELET COUNT DECREASED [None]
  - WHITE BLOOD CELL COUNT DECREASED [None]
